FAERS Safety Report 17456395 (Version 1)
Quarter: 2020Q1

REPORT INFORMATION
  Report Type: Spontaneous
  Country: GB (occurrence: GB)
  Receive Date: 20200225
  Receipt Date: 20200225
  Transmission Date: 20200409
  Serious: Yes (Other)
  Sender: FDA-Public Use
  Company Number: GB-PFIZER INC-2020077143

PATIENT
  Age: 46 Year
  Sex: Female

DRUGS (1)
  1. IBUPROFEN. [Suspect]
     Active Substance: IBUPROFEN
     Indication: PAIN
     Dosage: 2400 MG, 1X/DAY
     Route: 048
     Dates: start: 20190901, end: 20200123

REACTIONS (2)
  - Overdose [Unknown]
  - Oesophageal perforation [Recovered/Resolved with Sequelae]

NARRATIVE: CASE EVENT DATE: 20190901
